FAERS Safety Report 5334655-4 (Version None)
Quarter: 2007Q2

REPORT INFORMATION
  Report Type: 
  Country: None (occurrence: None)
  Receive Date: 20070525
  Receipt Date: 20070522
  Transmission Date: 20071010
  Serious: Yes (Hospitalization, Disabling)
  Sender: FDA-Public Use
  Company Number: B0470517A

PATIENT
  Age: 52 Year
  Sex: Male
  Weight: 75 kg

DRUGS (9)
  1. REQUIP [Suspect]
     Indication: PARKINSON'S DISEASE
     Route: 048
     Dates: start: 20070425
  2. NEODOPASTON [Concomitant]
     Indication: PARKINSON'S DISEASE
     Dosage: 300MG PER DAY
     Route: 048
     Dates: start: 19981116
  3. FP [Concomitant]
     Indication: DRUG USE FOR UNKNOWN INDICATION
     Route: 048
  4. DIAZEPAM [Concomitant]
     Indication: DRUG USE FOR UNKNOWN INDICATION
     Route: 065
  5. DEPAS [Concomitant]
     Indication: NEUROSIS
     Dosage: .5MG PER DAY
     Route: 048
  6. AMOBAN [Concomitant]
     Indication: INSOMNIA
     Dosage: .75MG PER DAY
     Route: 048
  7. EXCEGRAN [Concomitant]
     Indication: PARKINSON'S DISEASE
     Route: 065
     Dates: end: 20070425
  8. ADJUST A [Concomitant]
     Indication: CONSTIPATION
     Dosage: 40MG PER DAY
     Route: 048
  9. LAXOBERON [Concomitant]
     Indication: CONSTIPATION
     Route: 048

REACTIONS (9)
  - APHASIA [None]
  - ASTHENIA [None]
  - BLOOD PRESSURE FLUCTUATION [None]
  - CEREBRAL HAEMORRHAGE [None]
  - DISORIENTATION [None]
  - HAEMORRHAGE SUBCUTANEOUS [None]
  - HEMIPLEGIA [None]
  - MUSCLE RIGIDITY [None]
  - ORAL INTAKE REDUCED [None]
